FAERS Safety Report 5480630-9 (Version None)
Quarter: 2007Q4

REPORT INFORMATION
  Report Type: 
  Country: None (occurrence: None)
  Receive Date: 20071009
  Receipt Date: 20070928
  Transmission Date: 20080405
  Serious: Yes (Hospitalization)
  Sender: FDA-Public Use
  Company Number: FR-JNJFOC-20070905816

PATIENT
  Age: 77 Year
  Sex: Male

DRUGS (12)
  1. OFLOCET [Suspect]
     Indication: URINARY TRACT INFECTION
     Route: 048
     Dates: start: 20070217, end: 20070220
  2. GENTAMICIN SULFATE [Suspect]
     Indication: URINARY TRACT INFECTION
     Route: 065
     Dates: start: 20070217, end: 20070219
  3. ISOPTIN [Concomitant]
     Route: 048
  4. AUGMENTIN '125' [Concomitant]
     Indication: URINARY TRACT INFECTION
     Route: 065
     Dates: start: 20070219, end: 20070220
  5. TRIATEC [Concomitant]
     Indication: HYPERTENSION
     Route: 048
     Dates: end: 20070218
  6. PLAVIX [Concomitant]
     Route: 048
  7. HYPERIUM [Concomitant]
     Route: 048
  8. TAHOR [Concomitant]
     Route: 048
  9. ESIDRIX [Concomitant]
     Route: 048
  10. ZOPICLONE [Concomitant]
     Route: 048
  11. LASIX [Concomitant]
     Route: 048
  12. NITRODERM [Concomitant]
     Route: 062

REACTIONS (5)
  - BLOOD CREATININE INCREASED [None]
  - JAUNDICE [None]
  - RENAL FAILURE ACUTE [None]
  - URTICARIA [None]
  - VASCULAR PURPURA [None]
